FAERS Safety Report 23135693 (Version 2)
Quarter: 2023Q4

REPORT INFORMATION
  Report Type: Report from Study
  Country: CA (occurrence: CA)
  Receive Date: 20231101
  Receipt Date: 20231106
  Transmission Date: 20240110
  Serious: Yes (Other)
  Sender: FDA-Public Use
  Company Number: CA-LUNDBECK-DKLU3069609

PATIENT
  Age: 61 Year
  Sex: Female

DRUGS (1)
  1. VYEPTI [Suspect]
     Active Substance: EPTINEZUMAB-JJMR
     Indication: Migraine
     Route: 041
     Dates: start: 20230807, end: 202310

REACTIONS (5)
  - Pneumonia [Unknown]
  - Throat irritation [Unknown]
  - Oral pruritus [Unknown]
  - Migraine [Unknown]
  - Arthralgia [Unknown]

NARRATIVE: CASE EVENT DATE: 20230807
